FAERS Safety Report 8891319 (Version 1)
Quarter: 2012Q4

REPORT INFORMATION
  Report Type: Spontaneous
  Country: US (occurrence: None)
  Receive Date: 20121105
  Receipt Date: 20121105
  Transmission Date: 20130627
  Serious: Yes (Other)
  Sender: FDA-Public Use
  Company Number: None

PATIENT
  Age: 53 Year
  Sex: Female
  Weight: 52.16 kg

DRUGS (3)
  1. REBIF [Suspect]
     Dates: start: 200609, end: 200610
  2. REBIF [Suspect]
     Dates: start: 201109, end: 201204
  3. REBIF [Suspect]
     Dates: start: 200510, end: 201109

REACTIONS (1)
  - Alopecia [None]
